FAERS Safety Report 25862550 (Version 2)
Quarter: 2025Q4

REPORT INFORMATION
  Report Type: Spontaneous
  Country: RS (occurrence: RS)
  Receive Date: 20250930
  Receipt Date: 20251026
  Transmission Date: 20260117
  Serious: Yes (Other)
  Sender: ROCHE
  Company Number: RS-ROCHE-10000396194

PATIENT
  Age: 39 Year
  Sex: Female

DRUGS (9)
  1. RITUXIMAB [Suspect]
     Active Substance: RITUXIMAB
     Indication: Rheumatoid arthritis
     Dosage: LAST DOSE WAS IN JAN-2025
     Route: 065
     Dates: start: 200803
  2. METHOTREXATE [Suspect]
     Active Substance: METHOTREXATE
     Indication: Rheumatoid arthritis
     Dosage: AND THE LAST DOSE (XVII) WAS IN JAN-2025
     Route: 065
     Dates: start: 200803
  3. METHOTREXATE [Suspect]
     Active Substance: METHOTREXATE
     Route: 065
     Dates: start: 2014
  4. METHOTREXATE [Suspect]
     Active Substance: METHOTREXATE
     Route: 065
  5. NIRYPAN [Concomitant]
  6. NIRYPAN [Concomitant]
  7. SULFASALAZINE [Concomitant]
     Active Substance: SULFASALAZINE
  8. NIFEDIPINE [Concomitant]
     Active Substance: NIFEDIPINE
  9. BETAMETHASONE DIPROPIONATE\BETAMETHASONE SODIUM PHOSPHATE [Concomitant]
     Active Substance: BETAMETHASONE DIPROPIONATE\BETAMETHASONE SODIUM PHOSPHATE

REACTIONS (2)
  - Gastritis [Unknown]
  - Acute myocardial infarction [Unknown]

NARRATIVE: CASE EVENT DATE: 20220501
